FAERS Safety Report 7521735-8 (Version None)
Quarter: 2011Q2

REPORT INFORMATION
  Report Type: 
  Country: None (occurrence: None)
  Receive Date: 20110524
  Receipt Date: 20110517
  Transmission Date: 20111010
  Serious: Yes (Hospitalization, Disabling, Other)
  Sender: FDA-Public Use
  Company Number: 2010SP018678

PATIENT
  Age: 36 Year
  Sex: Female
  Weight: 85.2762 kg

DRUGS (1)
  1. NUVARING [Suspect]
     Indication: CONTRACEPTION
     Dosage: 1 DF, QM, VAG
     Route: 067
     Dates: start: 20070531, end: 20080325

REACTIONS (25)
  - ATELECTASIS [None]
  - POST PROCEDURAL HAEMORRHAGE [None]
  - COUGH [None]
  - MENSTRUATION IRREGULAR [None]
  - ARTHRALGIA [None]
  - ELECTROCARDIOGRAM POOR R-WAVE PROGRESSION [None]
  - VAGINAL HAEMORRHAGE [None]
  - MALAISE [None]
  - PAIN IN EXTREMITY [None]
  - FIBRIN D DIMER INCREASED [None]
  - FATIGUE [None]
  - DYSPNOEA [None]
  - INAPPROPRIATE SCHEDULE OF DRUG ADMINISTRATION [None]
  - IMPAIRED WORK ABILITY [None]
  - BLOOD CHOLESTEROL INCREASED [None]
  - PULMONARY INFARCTION [None]
  - WEIGHT INCREASED [None]
  - MUSCULOSKELETAL PAIN [None]
  - INTERNATIONAL NORMALISED RATIO DECREASED [None]
  - ASTHENIA [None]
  - CHEST PAIN [None]
  - PULMONARY EMBOLISM [None]
  - DEEP VEIN THROMBOSIS [None]
  - SINUS HEADACHE [None]
  - QRS AXIS ABNORMAL [None]
